FAERS Safety Report 7249926-4 (Version None)
Quarter: 2011Q1

REPORT INFORMATION
  Report Type: 
  Country: None (occurrence: None)
  Receive Date: 20110128
  Receipt Date: 20100910
  Transmission Date: 20110831
  Serious: No
  Sender: FDA-Public Use
  Company Number: A0881657A

PATIENT
  Age: 19 Year
  Sex: Female

DRUGS (3)
  1. WELLBUTRIN XL [Suspect]
     Dosage: 150MG PER DAY
     Route: 048
     Dates: start: 20100901
  2. BIRTH CONTROL PILLS [Suspect]
     Route: 065
     Dates: start: 20100901
  3. INSULIN [Concomitant]

REACTIONS (2)
  - DRUG INTERACTION [None]
  - INSOMNIA [None]
